FAERS Safety Report 19052695 (Version 2)
Quarter: 2021Q1

REPORT INFORMATION
  Report Type: Spontaneous
  Country: US (occurrence: US)
  Receive Date: 20210325
  Receipt Date: 20210329
  Transmission Date: 20210420
  Serious: No
  Sender: FDA-Public Use
  Company Number: US-GLAXOSMITHKLINE-US2021063926

PATIENT
  Sex: Female

DRUGS (1)
  1. VENTOLIN HFA [Suspect]
     Active Substance: ALBUTEROL SULFATE
     Indication: PRODUCT USED FOR UNKNOWN INDICATION
     Dosage: UNK

REACTIONS (22)
  - Ocular discomfort [Unknown]
  - Dysgeusia [Unknown]
  - Dental discomfort [Unknown]
  - Dizziness [Unknown]
  - Malaise [Unknown]
  - Headache [Unknown]
  - Pain in extremity [Unknown]
  - Paraesthesia [Unknown]
  - Nasal congestion [Unknown]
  - Dyspepsia [Unknown]
  - Oropharyngeal pain [Unknown]
  - Arthralgia [Unknown]
  - Ear pain [Unknown]
  - Back pain [Unknown]
  - Abdominal discomfort [Unknown]
  - Peripheral coldness [Unknown]
  - Muscle spasms [Unknown]
  - Hyperhidrosis [Unknown]
  - Fatigue [Unknown]
  - Neck pain [Unknown]
  - Dry mouth [Unknown]
  - Feeling cold [Unknown]
